FAERS Safety Report 6033279-3 (Version None)
Quarter: 2009Q1

REPORT INFORMATION
  Report Type: 
  Country: None (occurrence: None)
  Receive Date: 20090109
  Receipt Date: 20081204
  Transmission Date: 20090719
  Serious: Yes (Hospitalization)
  Sender: FDA-Public Use
  Company Number: JP-PFIZER INC-2008084771

PATIENT

DRUGS (12)
  1. CHAMPIX [Suspect]
     Indication: SMOKING CESSATION THERAPY
     Dosage: 1 MG, 1X/DAY
     Route: 048
     Dates: start: 20080913, end: 20080916
  2. NIPOLAZIN [Concomitant]
     Route: 048
  3. PRAVASTATIN SODIUM [Concomitant]
     Route: 048
  4. FAMOTIDINE [Concomitant]
     Route: 048
  5. AKINETON [Concomitant]
     Route: 048
  6. ABILIT [Concomitant]
     Route: 048
  7. SELBEX [Concomitant]
     Route: 048
  8. ALINAMIN F [Concomitant]
     Route: 048
  9. BLONANSERIN [Concomitant]
     Route: 048
     Dates: start: 20080916
  10. VALPROATE SODIUM [Concomitant]
     Route: 048
     Dates: start: 20080920
  11. NELBON [Concomitant]
     Route: 048
  12. LENDORMIN [Concomitant]
     Route: 048

REACTIONS (6)
  - ABNORMAL BEHAVIOUR [None]
  - ANXIETY [None]
  - DEPRESSED MOOD [None]
  - DEPRESSION SUICIDAL [None]
  - FEELING GUILTY [None]
  - IRRITABILITY [None]
